FAERS Safety Report 18355609 (Version 2)
Quarter: 2020Q4

REPORT INFORMATION
  Report Type: Spontaneous
  Country: JP (occurrence: JP)
  Receive Date: 20201007
  Receipt Date: 20201112
  Transmission Date: 20210114
  Serious: Yes (Other)
  Sender: FDA-Public Use
  Company Number: JP-SUNOVION-2020DSP012160

PATIENT
  Age: 71 Year
  Sex: Male
  Weight: 52.6 kg

DRUGS (33)
  1. HALOPERIDOL. [Interacting]
     Active Substance: HALOPERIDOL
     Dosage: 11 MG, QD
     Route: 048
     Dates: start: 20200925, end: 20201001
  2. BIPERIDEN HYDROCHLORIDE [Interacting]
     Active Substance: BIPERIDEN HYDROCHLORIDE
     Dosage: 1.5 MG, QD
     Route: 048
     Dates: start: 20201030
  3. GLYCEROL [Concomitant]
     Active Substance: GLYCERIN
     Dosage: 60 G, QD
     Route: 054
     Dates: start: 20200923, end: 20200924
  4. HALOPERIDOL. [Interacting]
     Active Substance: HALOPERIDOL
     Indication: PRODUCT USED FOR UNKNOWN INDICATION
     Dosage: 12 MG, QD
     Route: 048
     Dates: end: 20200903
  5. GLYCEROL [Concomitant]
     Active Substance: GLYCERIN
     Dosage: 60 G, QD
     Route: 054
     Dates: start: 20201012
  6. QUETIAPINE. [Concomitant]
     Active Substance: QUETIAPINE
     Dosage: 50 MG, BID
     Route: 048
     Dates: start: 20200904, end: 20200909
  7. GLYCEROL [Concomitant]
     Active Substance: GLYCERIN
     Dosage: 60 G, QD
     Route: 054
     Dates: start: 20201009
  8. LATUDA [Suspect]
     Active Substance: LURASIDONE HYDROCHLORIDE
     Indication: PRODUCT USED FOR UNKNOWN INDICATION
     Dosage: 20 MG, QD
     Route: 048
     Dates: start: 20200910, end: 20200923
  9. SERENACE [Interacting]
     Active Substance: HALOPERIDOL
     Indication: PRODUCT USED FOR UNKNOWN INDICATION
     Dosage: 3 MG, QD
     Route: 048
  10. SERENACE [Interacting]
     Active Substance: HALOPERIDOL
     Dosage: UNK
     Route: 048
  11. LEVOTOMIN [Interacting]
     Active Substance: LEVOMEPROMAZINE
     Indication: PRODUCT USED FOR UNKNOWN INDICATION
     Dosage: 50 MG, HS
     Route: 048
  12. MAGMITT [Concomitant]
     Active Substance: MAGNESIUM OXIDE
     Dosage: 330 MG, TID
     Route: 048
     Dates: end: 20200917
  13. GLYCEROL [Concomitant]
     Active Substance: GLYCERIN
     Dosage: 60 G, QD
     Route: 054
     Dates: start: 20200928, end: 20200928
  14. TAMSULOSIN HYDROCHLORIDE. [Concomitant]
     Active Substance: TAMSULOSIN HYDROCHLORIDE
     Dosage: 0.2 MG, QD
     Route: 048
     Dates: start: 20200924, end: 20201001
  15. MAGMITT [Concomitant]
     Active Substance: MAGNESIUM OXIDE
     Dosage: 330 MG, BID
     Route: 048
     Dates: start: 20200918, end: 20200918
  16. BIPERIDEN HYDROCHLORIDE [Interacting]
     Active Substance: BIPERIDEN HYDROCHLORIDE
     Indication: PRODUCT USED FOR UNKNOWN INDICATION
     Dosage: 3 MG, QD
     Route: 048
     Dates: end: 20201015
  17. BIPERIDEN HYDROCHLORIDE [Interacting]
     Active Substance: BIPERIDEN HYDROCHLORIDE
     Dosage: 2 MG, QD
     Route: 048
     Dates: start: 20201023, end: 20201029
  18. ZOPICLONE [Concomitant]
     Active Substance: ZOPICLONE
     Dosage: 7.5 MG, HS
     Route: 048
  19. VALPROATE SODIUM. [Concomitant]
     Active Substance: VALPROATE SODIUM
     Dosage: 500 MG, HS
     Route: 048
     Dates: end: 20201001
  20. MAGMITT [Concomitant]
     Active Substance: MAGNESIUM OXIDE
     Dosage: 330 MG, BID
     Route: 048
     Dates: start: 20200926, end: 20201001
  21. KETOPROFEN. [Concomitant]
     Active Substance: KETOPROFEN
     Dosage: UNK
     Route: 062
     Dates: start: 20200902
  22. CALONAL [Concomitant]
     Active Substance: ACETAMINOPHEN
     Dosage: 400 MG,AT THE TIME OF PYREXIA
     Route: 048
     Dates: start: 20200921
  23. UBRETID [Concomitant]
     Active Substance: DISTIGMINE BROMIDE
     Dosage: 5 MG, QD
     Route: 048
     Dates: start: 20201001
  24. HALOPERIDOL. [Interacting]
     Active Substance: HALOPERIDOL
     Dosage: 9 MG, QD
     Route: 048
     Dates: start: 20200904, end: 20200924
  25. HALOPERIDOL. [Interacting]
     Active Substance: HALOPERIDOL
     Dosage: 10 MG, QD
     Route: 048
     Dates: start: 20201002, end: 20201008
  26. YOKUKANSAN [Concomitant]
     Active Substance: HERBALS
     Dosage: 1 DF, QID
     Route: 048
     Dates: end: 20200922
  27. VALPROATE SODIUM. [Concomitant]
     Active Substance: VALPROATE SODIUM
     Dosage: 400 MG, HS
     Route: 048
     Dates: start: 20201002
  28. EBRANTIL [Concomitant]
     Active Substance: URAPIDIL
     Dosage: 15 MG, BID
     Route: 048
     Dates: start: 20201002, end: 20201029
  29. ZINC OXIDE SIMPLE OINTMENT [Concomitant]
     Active Substance: ZINC OXIDE
     Dosage: UNK
     Route: 003
     Dates: start: 20201012
  30. HALOPERIDOL. [Interacting]
     Active Substance: HALOPERIDOL
     Dosage: 9 MG, QD
     Route: 048
     Dates: start: 20201009
  31. BIPERIDEN HYDROCHLORIDE [Interacting]
     Active Substance: BIPERIDEN HYDROCHLORIDE
     Dosage: 2.5 MG, QD
     Route: 048
     Dates: start: 20201016, end: 20201022
  32. ROCALTROL [Concomitant]
     Active Substance: CALCITRIOL
     Dosage: 0.25 ?G, BID
     Route: 048
  33. SODIUM PICOSULFATE [Concomitant]
     Active Substance: SODIUM PICOSULFATE
     Dosage: UNK,AT THE TIME OF CONSTIPATION
     Route: 048
     Dates: start: 20200917

REACTIONS (3)
  - Drug interaction [Recovered/Resolved]
  - Prescribed underdose [Unknown]
  - Urinary retention [Recovered/Resolved]

NARRATIVE: CASE EVENT DATE: 20200922
